FAERS Safety Report 16885510 (Version 5)
Quarter: 2019Q4

REPORT INFORMATION
  Report Type: Spontaneous
  Country: JP (occurrence: JP)
  Receive Date: 20191004
  Receipt Date: 20191126
  Transmission Date: 20200122
  Serious: Yes (Other)
  Sender: FDA-Public Use
  Company Number: JP-AMGEN-JPNSP2019162749

PATIENT
  Age: 94 Year
  Sex: Female

DRUGS (1)
  1. ENBREL [Suspect]
     Active Substance: ETANERCEPT
     Indication: RHEUMATOID ARTHRITIS
     Dosage: 25 MILLIGRAM, Q2WK
     Route: 058
     Dates: start: 201901

REACTIONS (7)
  - Off label use [Unknown]
  - Internal haemorrhage [Unknown]
  - Pain [Recovered/Resolved]
  - Injury associated with device [Recovered/Resolved]
  - Sensitive skin [Unknown]
  - Device issue [Unknown]
  - Product use issue [Unknown]

NARRATIVE: CASE EVENT DATE: 201901
